FAERS Safety Report 7434093-4 (Version None)
Quarter: 2011Q2

REPORT INFORMATION
  Report Type: 
  Country: None (occurrence: None)
  Receive Date: 20110425
  Receipt Date: 20100830
  Transmission Date: 20111010
  Serious: No
  Sender: FDA-Public Use
  Company Number: US-MYLANLABS-2010S1016199

PATIENT
  Age: 59 Year
  Sex: Female

DRUGS (5)
  1. LORAZEPAM [Suspect]
     Route: 048
  2. LORAZEPAM [Suspect]
     Indication: INSOMNIA
     Route: 048
  3. INSULIN [Concomitant]
     Indication: DIABETES MELLITUS
  4. LORAZEPAM [Suspect]
     Indication: ANXIETY
     Route: 048
  5. LORAZEPAM [Suspect]
     Route: 048

REACTIONS (1)
  - MALAISE [None]
